FAERS Safety Report 9717546 (Version 2)
Quarter: 2015Q3

REPORT INFORMATION
  Report Type: Spontaneous
  Country: US (occurrence: US)
  Receive Date: 20131127
  Receipt Date: 20150803
  Transmission Date: 20151125
  Serious: No
  Sender: FDA-Public Use
  Company Number: US-GILEAD-2009-0020545

PATIENT
  Age: 76 Year
  Sex: Female

DRUGS (16)
  1. METOLAZONE. [Concomitant]
     Active Substance: METOLAZONE
  2. HYDRALAZINE [Concomitant]
     Active Substance: HYDRALAZINE HYDROCHLORIDE
  3. CARVEDILOL. [Concomitant]
     Active Substance: CARVEDILOL
  4. LOVASTATIN. [Concomitant]
     Active Substance: LOVASTATIN
  5. NEXIUM [Concomitant]
     Active Substance: ESOMEPRAZOLE MAGNESIUM
  6. ACTOS [Concomitant]
     Active Substance: PIOGLITAZONE HYDROCHLORIDE
  7. ASPIRIN. [Concomitant]
     Active Substance: ASPIRIN
  8. VITAMIN D [Concomitant]
     Active Substance: CHOLECALCIFEROL
  9. DIPHENHYDRAMINE. [Concomitant]
     Active Substance: DIPHENHYDRAMINE
  10. COLACE [Concomitant]
     Active Substance: DOCUSATE SODIUM
  11. LASIX [Concomitant]
     Active Substance: FUROSEMIDE
  12. CALCITRIOL. [Concomitant]
     Active Substance: CALCITRIOL
  13. PLAVIX [Concomitant]
     Active Substance: CLOPIDOGREL BISULFATE
  14. HYDROCODONE-APAP [Concomitant]
     Active Substance: ACETAMINOPHEN\HYDROCODONE
  15. LETAIRIS [Suspect]
     Active Substance: AMBRISENTAN
     Indication: PULMONARY ARTERIAL HYPERTENSION
     Route: 048
     Dates: start: 20090114
  16. ISOSORBIDE. [Concomitant]
     Active Substance: ISOSORBIDE

REACTIONS (5)
  - Malaise [Unknown]
  - Asthenia [Unknown]
  - Dyspnoea [Unknown]
  - Gait disturbance [Unknown]
  - Fatigue [Unknown]
